FAERS Safety Report 6058148-4 (Version None)
Quarter: 2009Q1

REPORT INFORMATION
  Report Type: 
  Country: None (occurrence: None)
  Receive Date: 20090127
  Receipt Date: 20090115
  Transmission Date: 20090719
  Serious: Yes (Life-Threatening)
  Sender: FDA-Public Use
  Company Number: ADE2009-0423

PATIENT
  Age: 79 Year
  Sex: Female

DRUGS (9)
  1. AMLODIPINE [Suspect]
     Dosage: 5MG ORAL
     Route: 048
  2. ASPIRIN [Suspect]
     Dosage: 75MG ORAL
     Route: 048
  3. ATORVASTATIN [Suspect]
     Dosage: 10MG ORAL
     Route: 048
  4. LANSOPRAZOLE [Suspect]
     Dosage: 30MG ORAL
     Route: 048
  5. RANITIDINE [Suspect]
     Dosage: 300MG ORAL
     Route: 048
  6. SERETIDE [Suspect]
     Dosage: 4DF INHALATION
     Route: 055
  7. TEMAZEPAM [Suspect]
     Dosage: 20MG ORAL
     Route: 048
  8. VALSARTAN [Suspect]
     Dosage: 80MG ORAL
     Route: 048
  9. VENTOLIN [Suspect]
     Dosage: 800MCG INHALATION
     Route: 055

REACTIONS (1)
  - ASTHMA [None]
